FAERS Safety Report 20993910 (Version 1)
Quarter: 2022Q2

REPORT INFORMATION
  Report Type: Spontaneous
  Country: US (occurrence: US)
  Receive Date: 20220622
  Receipt Date: 20220622
  Transmission Date: 20220721
  Serious: No
  Sender: FDA-Public Use
  Company Number: US-Ipsen Biopharmaceuticals, Inc.-2022-17810

PATIENT
  Age: 51 Year
  Sex: Female

DRUGS (6)
  1. DYSPORT [Suspect]
     Active Substance: ABOBOTULINUMTOXINA
     Indication: Skin wrinkling
     Dosage: 36 IU IN CROW^S FEET
     Route: 065
     Dates: start: 20220404, end: 20220404
  2. DYSPORT [Suspect]
     Active Substance: ABOBOTULINUMTOXINA
     Indication: Skin wrinkling
  3. DYSPORT [Suspect]
     Active Substance: ABOBOTULINUMTOXINA
     Indication: Skin wrinkling
  4. DYSPORT [Suspect]
     Active Substance: ABOBOTULINUMTOXINA
     Indication: Off label use
  5. JUVEDERM ULTRA PLUS [Suspect]
     Active Substance: HYALURONIC ACID\LIDOCAINE HYDROCHLORIDE
     Indication: Skin cosmetic procedure
     Dates: start: 20220404
  6. BOTOX [Suspect]
     Active Substance: ONABOTULINUMTOXINA
     Indication: Product used for unknown indication

REACTIONS (12)
  - Dizziness [Unknown]
  - Pharyngeal hypoaesthesia [Unknown]
  - Eyelid ptosis [Unknown]
  - Tinnitus [Unknown]
  - Headache [Unknown]
  - Hypoaesthesia [Unknown]
  - Mastication disorder [Unknown]
  - Drug ineffective for unapproved indication [Unknown]
  - Unevaluable event [Unknown]
  - Therapeutic response shortened [Unknown]
  - Off label use [Unknown]
  - Off label use [Unknown]

NARRATIVE: CASE EVENT DATE: 20220101
